FAERS Safety Report 8276776-2 (Version None)
Quarter: 2012Q2

REPORT INFORMATION
  Report Type: 
  Country: None (occurrence: None)
  Receive Date: 20120412
  Receipt Date: 20120409
  Transmission Date: 20120825
  Serious: Yes (Other)
  Sender: FDA-Public Use
  Company Number: US-PFIZER INC-2012088880

PATIENT
  Sex: Female
  Weight: 89.342 kg

DRUGS (2)
  1. LYRICA [Suspect]
     Indication: NERVE COMPRESSION
     Dosage: 150 MG, 2X/DAY
     Route: 048
     Dates: start: 20110101, end: 20120303
  2. TOPAMAX [Concomitant]
     Indication: CONVULSION
     Dosage: UNK

REACTIONS (6)
  - MIGRAINE [None]
  - NERVE COMPRESSION [None]
  - PAIN IN EXTREMITY [None]
  - BACK PAIN [None]
  - ACTIVITIES OF DAILY LIVING IMPAIRED [None]
  - PAIN [None]
